FAERS Safety Report 25023185 (Version 1)
Quarter: 2025Q1

REPORT INFORMATION
  Report Type: Spontaneous
  Country: FR (occurrence: FR)
  Receive Date: 20250228
  Receipt Date: 20250228
  Transmission Date: 20250409
  Serious: Yes (Death, Other)
  Sender: RANBAXY
  Company Number: FR-SUN PHARMACEUTICAL INDUSTRIES LTD-2025RR-497138

PATIENT
  Age: 62 Year
  Sex: Male
  Weight: 103.4 kg

DRUGS (6)
  1. ATENOLOL [Interacting]
     Active Substance: ATENOLOL
     Indication: Hypertension
     Route: 048
     Dates: start: 20241125, end: 20241129
  2. RISPERDAL [Interacting]
     Active Substance: RISPERIDONE
     Indication: Bipolar disorder
     Dosage: 2 MILLIGRAM, DAILY
     Route: 048
     Dates: start: 20241124, end: 20241129
  3. DEPAKOTE [Interacting]
     Active Substance: DIVALPROEX SODIUM
     Indication: Bipolar disorder
     Dosage: 1500 MILLIGRAM, DAILY
     Route: 048
     Dates: end: 20241129
  4. MIRTAZAPINE [Interacting]
     Active Substance: MIRTAZAPINE
     Indication: Depression
     Dosage: 15 MILLIGRAM, DAILY
     Route: 048
     Dates: end: 20241129
  5. EFFEXOR [Interacting]
     Active Substance: VENLAFAXINE HYDROCHLORIDE
     Indication: Depression
     Dosage: 75 MILLIGRAM, DAILY
     Route: 048
     Dates: end: 20241129
  6. TROPATEPINE HYDROCHLORIDE [Interacting]
     Active Substance: TROPATEPINE HYDROCHLORIDE
     Indication: Extrapyramidal disorder
     Dosage: 20 MILLIGRAM, DAILY
     Route: 048
     Dates: start: 20241124, end: 20241129

REACTIONS (1)
  - Neuroleptic malignant syndrome [Fatal]

NARRATIVE: CASE EVENT DATE: 20241127
